FAERS Safety Report 4886245-5 (Version None)
Quarter: 2006Q1

REPORT INFORMATION
  Report Type: 
  Country: None (occurrence: None)
  Receive Date: 20060120
  Receipt Date: 20060113
  Transmission Date: 20060701
  Serious: Yes (Other)
  Sender: FDA-Public Use
  Company Number: PHBS2006JP00967

PATIENT
  Sex: Male

DRUGS (5)
  1. DIOVAN [Suspect]
     Dosage: 80 MG/DAY
     Route: 048
  2. ASPIRIN [Suspect]
  3. WARFARIN [Suspect]
  4. PLETAL [Suspect]
  5. ADALAT [Suspect]

REACTIONS (1)
  - JAUNDICE [None]
